FAERS Safety Report 5254350-X (Version None)
Quarter: 2007Q2

REPORT INFORMATION
  Report Type: 
  Country: None (occurrence: None)
  Receive Date: 20070302
  Receipt Date: 20070220
  Transmission Date: 20071010
  Serious: Yes (Hospitalization)
  Sender: FDA-Public Use
  Company Number: US-JNJFOC-20070204372

PATIENT
  Age: 65 Year
  Sex: Female

DRUGS (19)
  1. PREZISTA [Suspect]
     Indication: HIV INFECTION
     Route: 048
  2. NORVIR [Suspect]
     Indication: HIV INFECTION
     Route: 065
  3. MK0518 [Suspect]
     Indication: HIV INFECTION
     Route: 048
  4. EPIVIR [Suspect]
     Indication: HIV INFECTION
     Route: 065
  5. NORVASC [Concomitant]
     Route: 065
  6. PREDNISONE [Concomitant]
     Route: 065
  7. VALCYTE [Concomitant]
     Route: 065
  8. CALCIUM CARBONATE [Concomitant]
     Route: 065
  9. VITAMIN D [Concomitant]
     Route: 065
  10. MAGNESIUM [Concomitant]
     Route: 065
  11. IMODIUM [Concomitant]
     Route: 065
  12. BACTRIM DS [Concomitant]
     Route: 048
  13. COUMADIN [Concomitant]
     Route: 065
  14. ALINIA [Concomitant]
     Route: 065
  15. FLUCONAZOLE [Concomitant]
     Route: 065
  16. NEXIUM [Concomitant]
     Route: 065
  17. IRON [Concomitant]
     Route: 065
  18. NEURONTIN [Concomitant]
     Route: 065
  19. AZITHROMYCIN [Concomitant]
     Route: 065

REACTIONS (1)
  - ANAEMIA [None]
